FAERS Safety Report 16326204 (Version 2)
Quarter: 2019Q4

REPORT INFORMATION
  Report Type: Spontaneous
  Country: CA (occurrence: CA)
  Receive Date: 20190517
  Receipt Date: 20191129
  Transmission Date: 20200122
  Serious: Yes (Other)
  Sender: FDA-Public Use
  Company Number: CA-ASTRAZENECA-2019SE74083

PATIENT
  Age: 40 Year
  Sex: Female

DRUGS (20)
  1. GLYCOPYRRONIUM BROMIDE [Suspect]
     Active Substance: GLYCOPYRRONIUM
     Route: 055
  2. SPIRIVA [Suspect]
     Active Substance: TIOTROPIUM BROMIDE MONOHYDRATE
     Route: 065
  3. ARNUITY ELLIPTA [Suspect]
     Active Substance: FLUTICASONE FUROATE
     Route: 065
  4. SALBUTAMOL SULFATE [Suspect]
     Active Substance: ALBUTEROL SULFATE
     Route: 065
  5. REACTINE [Concomitant]
  6. ATROVENT [Suspect]
     Active Substance: IPRATROPIUM BROMIDE
     Route: 055
  7. ACETYLSALICYLIC ACID [Concomitant]
     Active Substance: ASPIRIN
  8. ROSUVASTATIN CALCIUM. [Concomitant]
     Active Substance: ROSUVASTATIN CALCIUM
  9. SALBUTAMOL [Suspect]
     Active Substance: ALBUTEROL
     Route: 065
  10. PULMICORT TURBUHALER [Suspect]
     Active Substance: BUDESONIDE
     Route: 055
  11. TUDORZA GENUAIR [Suspect]
     Active Substance: ACLIDINIUM BROMIDE
     Route: 055
  12. ATOCK [Suspect]
     Active Substance: FORMOTEROL FUMARATE
     Route: 065
  13. SINGULAIR [Suspect]
     Active Substance: MONTELUKAST SODIUM
     Route: 065
  14. ZENHALE [Suspect]
     Active Substance: FORMOTEROL FUMARATE\MOMETASONE FUROATE
     Route: 065
  15. EZETIMIBE. [Concomitant]
     Active Substance: EZETIMIBE
  16. ALVESCO [Suspect]
     Active Substance: CICLESONIDE
     Route: 055
  17. NOVORAPID [Suspect]
     Active Substance: INSULIN ASPART
     Route: 058
  18. TRAZODONE [Suspect]
     Active Substance: TRAZODONE HYDROCHLORIDE
     Route: 065
  19. TECTA [Concomitant]
     Active Substance: PANTOPRAZOLE MAGNESIUM
  20. INDACATEROL MALEATE [Suspect]
     Active Substance: INDACATEROL MALEATE
     Route: 065

REACTIONS (26)
  - Pneumonia [Recovering/Resolving]
  - Skin lesion [Recovering/Resolving]
  - Sleep apnoea syndrome [Recovering/Resolving]
  - Drug ineffective [Recovering/Resolving]
  - Myocardial infarction [Recovering/Resolving]
  - Polycystic ovaries [Recovering/Resolving]
  - Restless legs syndrome [Recovering/Resolving]
  - Abscess [Recovering/Resolving]
  - Blood test abnormal [Recovering/Resolving]
  - Coronary artery disease [Recovering/Resolving]
  - Obstructive airways disorder [Recovering/Resolving]
  - Condition aggravated [Recovering/Resolving]
  - Gastrooesophageal reflux disease [Recovering/Resolving]
  - Hyper IgE syndrome [Recovering/Resolving]
  - Hypertension [Recovering/Resolving]
  - Pruritus [Recovering/Resolving]
  - Asthma [Recovered/Resolved with Sequelae]
  - Cough [Recovering/Resolving]
  - Dyslipidaemia [Recovering/Resolving]
  - Eczema [Recovering/Resolving]
  - Restrictive pulmonary disease [Recovering/Resolving]
  - Type 2 diabetes mellitus [Recovering/Resolving]
  - Weight decreased [Recovering/Resolving]
  - Depression [Recovering/Resolving]
  - Disability [Recovering/Resolving]
  - Dyspnoea [Recovering/Resolving]
